FAERS Safety Report 9505615 (Version 1)
Quarter: 2013Q1

REPORT INFORMATION
  Report Type: Spontaneous
  Country: US (occurrence: None)
  Receive Date: 20130220
  Receipt Date: 20130220
  Transmission Date: 20140127
  Serious: No
  Sender: FDA-Public Use
  Company Number: 1000041176

PATIENT
  Age: 53 Year
  Sex: Female

DRUGS (6)
  1. VIIBYRD [Suspect]
     Indication: MAJOR DEPRESSION
     Dosage: 10 MG (10 MG, 1 IN 1 D), ORAL
     Route: 048
     Dates: start: 201109, end: 2011
  2. VIIBYRD [Suspect]
     Indication: MAJOR DEPRESSION
     Dosage: 40 MG (40 MG, 1 IN 1 D), ORAL
     Route: 048
     Dates: start: 2011, end: 201112
  3. VIIBYRD [Suspect]
     Indication: MAJOR DEPRESSION
     Dosage: 30 MG (30 MG, 1 IN 1 D), ORAL
     Route: 048
     Dates: start: 201112
  4. WELLBUTRIN (BUPROPION HYDROCHLORIDE) (BUPROPION HYDROCHLORIDE) [Concomitant]
  5. LAMICTAL (LAMOTRIGINE) (LAMOTRIGINE) [Concomitant]
  6. RISPERDAL (RISPERIDONE) (RISPERIDONE) [Concomitant]

REACTIONS (3)
  - Weight increased [None]
  - Depression [None]
  - Diarrhoea [None]
